FAERS Safety Report 25208534 (Version 1)
Quarter: 2025Q2

REPORT INFORMATION
  Report Type: Spontaneous
  Country: HR (occurrence: HR)
  Receive Date: 20250417
  Receipt Date: 20250417
  Transmission Date: 20250716
  Serious: Yes (Hospitalization, Other)
  Sender: BRISTOL MYERS SQUIBB
  Company Number: HR-BRISTOL-MYERS SQUIBB COMPANY-2025-050864

PATIENT
  Age: 53 Year
  Sex: Female

DRUGS (5)
  1. OPDIVO [Suspect]
     Active Substance: NIVOLUMAB
     Indication: Metastatic renal cell carcinoma
     Route: 042
     Dates: start: 20210625, end: 20210902
  2. YERVOY [Suspect]
     Active Substance: IPILIMUMAB
     Indication: Metastatic renal cell carcinoma
     Route: 042
     Dates: start: 20210625, end: 20210902
  3. AMLODIPINE BESYLATE\INDAPAMIDE\PERINDOPRIL ARGININE [Concomitant]
     Active Substance: AMLODIPINE BESYLATE\INDAPAMIDE\PERINDOPRIL ARGININE
     Indication: Product used for unknown indication
  4. BISOPROLOL FUMARATE [Concomitant]
     Active Substance: BISOPROLOL FUMARATE
     Indication: Product used for unknown indication
  5. OXAZEPAM [Concomitant]
     Active Substance: OXAZEPAM
     Indication: Product used for unknown indication

REACTIONS (12)
  - Hyponatraemia [Recovering/Resolving]
  - Gastroenteritis [Recovering/Resolving]
  - Chronic gastritis [Unknown]
  - Hypopituitarism [Recovering/Resolving]
  - Secondary adrenocortical insufficiency [Recovering/Resolving]
  - Dermatitis [Unknown]
  - Arthralgia [Unknown]
  - Hypochloraemia [Recovering/Resolving]
  - Hypophysitis [Recovering/Resolving]
  - Autoimmune thyroiditis [Recovering/Resolving]
  - Hyperthyroidism [Recovering/Resolving]
  - Urinary tract infection [Recovering/Resolving]

NARRATIVE: CASE EVENT DATE: 20210101
